FAERS Safety Report 6704016-1 (Version None)
Quarter: 2010Q2

REPORT INFORMATION
  Report Type: 
  Country: None (occurrence: None)
  Receive Date: 20100430
  Receipt Date: 20100423
  Transmission Date: 20101027
  Serious: Yes (Hospitalization)
  Sender: FDA-Public Use
  Company Number: JP-BAYER-200937307GPV

PATIENT
  Age: 76 Year
  Sex: Female
  Weight: 52 kg

DRUGS (14)
  1. SORAFENIB [Suspect]
     Indication: HEPATIC NEOPLASM MALIGNANT
     Route: 048
     Dates: start: 20091013, end: 20091013
  2. SORAFENIB [Suspect]
     Route: 048
     Dates: start: 20091016, end: 20091001
  3. SORAFENIB [Suspect]
     Route: 048
     Dates: start: 20091014, end: 20091015
  4. URSO 250 [Concomitant]
     Indication: PROPHYLAXIS
  5. AMLODIN [Concomitant]
     Indication: HYPERTENSION
  6. ALLEGRA [Concomitant]
     Indication: PRURITUS
  7. ALDACTONE [Concomitant]
     Indication: ASCITES
  8. SILECE [Concomitant]
     Indication: INSOMNIA
  9. LASIX [Concomitant]
     Indication: ASCITES
  10. LASIX [Concomitant]
  11. PARIET [Concomitant]
     Indication: GASTRIC ULCER
  12. RESTAMIN [Concomitant]
     Indication: PRURITUS
     Dates: start: 20091013
  13. MAGLAX [Concomitant]
     Dates: end: 20091026
  14. LACTULOSE-P [Concomitant]
     Dates: start: 20091026

REACTIONS (5)
  - ABDOMINAL PAIN LOWER [None]
  - HEADACHE [None]
  - HEPATIC ENZYME INCREASED [None]
  - INFLAMMATION [None]
  - PYREXIA [None]
